FAERS Safety Report 18329054 (Version 1)
Quarter: 2020Q3

REPORT INFORMATION
  Report Type: Spontaneous
  Country: SI (occurrence: SI)
  Receive Date: 20200930
  Receipt Date: 20200930
  Transmission Date: 20201103
  Serious: Yes (Other)
  Sender: FDA-Public Use
  Company Number: SI-ACCORD-203511

PATIENT
  Age: 59 Year
  Sex: Male

DRUGS (6)
  1. GEMCITABINE. [Suspect]
     Active Substance: GEMCITABINE
     Indication: CHOLANGIOCARCINOMA
     Dosage: STRENGTH?38 MG / ML POWDER FOR SOLUTION FOR INFUSION
     Route: 042
     Dates: start: 20191224, end: 20200409
  2. DEXAMETHASONE. [Concomitant]
     Active Substance: DEXAMETHASONE
     Dosage: ACCORDING TO THE SCHEME
  3. CISPLATIN. [Suspect]
     Active Substance: CISPLATIN
     Indication: CHOLANGIOCARCINOMA
     Dosage: STRENGTH?1 MG / ML CONCENTRATE FOR SOLUTION FOR INFUSION
     Route: 042
     Dates: start: 20191224, end: 20200409
  4. DALERON [Concomitant]
     Active Substance: ACETAMINOPHEN
  5. NOLPAZA [Concomitant]
     Active Substance: PANTOPRAZOLE SODIUM
     Dosage: STRENGTH?40 MG
  6. NOVONORM [Concomitant]
     Active Substance: REPAGLINIDE
     Dosage: ACCORDING TO THE SCHEME

REACTIONS (3)
  - Anaemia [Recovered/Resolved]
  - Off label use [Unknown]
  - Thrombocytopenia [Recovered/Resolved]

NARRATIVE: CASE EVENT DATE: 20200325
